FAERS Safety Report 12646843 (Version 1)
Quarter: 2016Q3

REPORT INFORMATION
  Report Type: Spontaneous
  Country: US (occurrence: US)
  Receive Date: 20160812
  Receipt Date: 20160812
  Transmission Date: 20161109
  Serious: No
  Sender: FDA-Public Use
  Company Number: US-BEH-2016072315

PATIENT
  Sex: Female
  Weight: 99.32 kg

DRUGS (34)
  1. HIZENTRA [Suspect]
     Active Substance: HUMAN IMMUNOGLOBULIN G
     Indication: IMMUNODEFICIENCY COMMON VARIABLE
     Dosage: 15 G, QW
     Route: 058
     Dates: start: 20140826
  2. LASIX [Concomitant]
     Active Substance: FUROSEMIDE
  3. TRIAMCINOLONE [Concomitant]
     Active Substance: TRIAMCINOLONE
  4. DULERA [Concomitant]
     Active Substance: FORMOTEROL FUMARATE DIHYDRATE\MOMETASONE FUROATE
  5. POTASSIUM [Concomitant]
     Active Substance: POTASSIUM
  6. NAPROXEN. [Concomitant]
     Active Substance: NAPROXEN
  7. PRAVACHOL [Concomitant]
     Active Substance: PRAVASTATIN SODIUM
  8. OSCAL [Concomitant]
     Active Substance: CALCIUM CARBONATE
  9. PROZAC [Concomitant]
     Active Substance: FLUOXETINE HYDROCHLORIDE
  10. EPIPEN [Concomitant]
     Active Substance: EPINEPHRINE
  11. TUDORZA PRESSAIR [Concomitant]
     Active Substance: ACLIDINIUM BROMIDE
  12. HYDROXYCHLOROQUINE [Concomitant]
     Active Substance: HYDROXYCHLOROQUINE
  13. SULFASALAZINE. [Concomitant]
     Active Substance: SULFASALAZINE
  14. FISH OIL [Concomitant]
     Active Substance: FISH OIL
  15. HIZENTRA [Suspect]
     Active Substance: HUMAN IMMUNOGLOBULIN G
     Dosage: UNK
     Route: 058
  16. HIZENTRA [Suspect]
     Active Substance: HUMAN IMMUNOGLOBULIN G
     Dosage: UNK
     Route: 058
  17. DIPHENHYDRAMINE. [Concomitant]
     Active Substance: DIPHENHYDRAMINE
  18. PREDNISONE. [Concomitant]
     Active Substance: PREDNISONE
  19. MUPIROCIN. [Concomitant]
     Active Substance: MUPIROCIN
  20. LOSARTAN. [Concomitant]
     Active Substance: LOSARTAN
  21. GABAPENTIN. [Concomitant]
     Active Substance: GABAPENTIN
  22. MELOXICAM. [Concomitant]
     Active Substance: MELOXICAM
  23. SINGULAIR [Concomitant]
     Active Substance: MONTELUKAST SODIUM
  24. NEXIUM [Concomitant]
     Active Substance: ESOMEPRAZOLE MAGNESIUM
  25. CETIRIZINE [Concomitant]
     Active Substance: CETIRIZINE HYDROCHLORIDE
  26. ATROVENT [Concomitant]
     Active Substance: IPRATROPIUM BROMIDE
  27. PROVENTIL [Concomitant]
     Active Substance: ALBUTEROL
  28. FLONASE [Concomitant]
     Active Substance: FLUTICASONE PROPIONATE
  29. HYDROCHLOROTHIAZIDE. [Concomitant]
     Active Substance: HYDROCHLOROTHIAZIDE
  30. HIZENTRA [Suspect]
     Active Substance: HUMAN IMMUNOGLOBULIN G
     Dosage: UNK
     Route: 058
  31. ACETAMINOPHEN. [Concomitant]
     Active Substance: ACETAMINOPHEN
  32. LIDOCAINE/PRILOCAINE [Concomitant]
     Active Substance: LIDOCAINE\PRILOCAINE
  33. METHYLPREDNISOLONE. [Concomitant]
     Active Substance: METHYLPREDNISOLONE
  34. ASTELIN                            /00085801/ [Concomitant]
     Active Substance: AZELASTINE HYDROCHLORIDE

REACTIONS (2)
  - Candida infection [Unknown]
  - Sinusitis [Unknown]
